FAERS Safety Report 4725577-8 (Version None)
Quarter: 2005Q3

REPORT INFORMATION
  Report Type: 
  Country: None (occurrence: None)
  Receive Date: 20050722
  Receipt Date: 20050722
  Transmission Date: 20060218
  Serious: Yes (Other)
  Sender: FDA-Public Use
  Company Number: None

PATIENT
  Sex: Female
  Weight: 52.1637 kg

DRUGS (6)
  1. EFFEXOR XR [Suspect]
     Indication: DEPRESSION
     Dosage: 75 MG ONCE DAILY PO DECREASING TAPER
     Route: 048
     Dates: start: 20050513, end: 20050614
  2. EFFEXOR XR [Suspect]
     Indication: DEPRESSION
     Dosage: 75 MG ONCE DAILY PO DECREASING TAPER
     Route: 048
     Dates: start: 20050614, end: 20050701
  3. WELLBUTRIN XL [Concomitant]
  4. CLARITIN [Concomitant]
  5. MULTI-VITAMIN [Concomitant]
  6. BENADRYL [Concomitant]

REACTIONS (7)
  - ABNORMAL DREAMS [None]
  - DISTURBANCE IN ATTENTION [None]
  - DIZZINESS [None]
  - DRUG WITHDRAWAL SYNDROME [None]
  - INFLUENZA [None]
  - INSOMNIA [None]
  - NAUSEA [None]
